FAERS Safety Report 7909214-7 (Version None)
Quarter: 2011Q4

REPORT INFORMATION
  Report Type: 
  Country: None (occurrence: None)
  Receive Date: 20111111
  Receipt Date: 20111031
  Transmission Date: 20120403
  Serious: Yes (Hospitalization)
  Sender: FDA-Public Use
  Company Number: US-MYLANLABS-2011S1022531

PATIENT
  Age: 84 Year
  Sex: Female

DRUGS (8)
  1. CARVEDILOL [Concomitant]
  2. CITALOPRAM HYDROBROMIDE [Concomitant]
  3. FENTANYL-100 [Suspect]
     Indication: PAIN
     Dosage: Q72H
     Route: 062
     Dates: start: 20080701
  4. SIMVASTATIN [Concomitant]
  5. ROPINIROLE [Concomitant]
  6. LEVOTHYROXINE SODIUM [Concomitant]
  7. AGGRENOX [Concomitant]
  8. OMEPRAZOLE [Concomitant]

REACTIONS (8)
  - APPLICATION SITE IRRITATION [None]
  - PRODUCT ADHESION ISSUE [None]
  - HEART RATE IRREGULAR [None]
  - PAIN [None]
  - AGITATION [None]
  - DEVICE PHYSICAL PROPERTY ISSUE [None]
  - DRUG INEFFECTIVE [None]
  - PRODUCT QUALITY ISSUE [None]
